FAERS Safety Report 5533328-2 (Version None)
Quarter: 2007Q4

REPORT INFORMATION
  Report Type: 
  Country: None (occurrence: None)
  Receive Date: 20071204
  Receipt Date: 20071123
  Transmission Date: 20080405
  Serious: Yes (Other)
  Sender: FDA-Public Use
  Company Number: FR-JNJFOC-20071104177

PATIENT
  Age: 88 Year
  Sex: Female

DRUGS (2)
  1. DURAGESIC-100 [Suspect]
     Route: 062
  2. DURAGESIC-100 [Suspect]
     Indication: DRUG USE FOR UNKNOWN INDICATION
     Route: 062

REACTIONS (4)
  - CARDIAC FAILURE [None]
  - HYPOTHERMIA [None]
  - OEDEMA [None]
  - OVERDOSE [None]
